FAERS Safety Report 18629220 (Version 2)
Quarter: 2021Q1

REPORT INFORMATION
  Report Type: Spontaneous
  Country: US (occurrence: US)
  Receive Date: 20201217
  Receipt Date: 20210111
  Transmission Date: 20210419
  Serious: No
  Sender: FDA-Public Use
  Company Number: US-ASTRAZENECA-2020SF66831

PATIENT
  Age: 27552 Day
  Sex: Female
  Weight: 75.3 kg

DRUGS (21)
  1. MAGNESIUM [Concomitant]
     Active Substance: MAGNESIUM
  2. SOLU?MEDROL [Concomitant]
     Active Substance: METHYLPREDNISOLONE SODIUM SUCCINATE
  3. LISINIPRIL [Concomitant]
     Active Substance: LISINOPRIL
     Dosage: 5.0MG UNKNOWN
  4. LEXAPRO [Concomitant]
     Active Substance: ESCITALOPRAM OXALATE
     Dosage: 10.0MG UNKNOWN
  5. VITAMIN E [Concomitant]
     Active Substance: .ALPHA.-TOCOPHEROL
     Dosage: 1000
  6. LOSARTIN [Concomitant]
     Active Substance: LOSARTAN
  7. MULTIVITAMIN WITH  FOLIC ACID [Concomitant]
     Dosage: DAILY
  8. SIMVASTATIN. [Concomitant]
     Active Substance: SIMVASTATIN
     Dosage: 40.0MG UNKNOWN
  9. OMNEPRAZOLE [Suspect]
     Active Substance: OMEPRAZOLE
     Dosage: UNKNOWN
     Route: 048
  10. COENZYME CU10 [Concomitant]
  11. MELATONIN [Concomitant]
     Active Substance: MELATONIN
     Dosage: 10.0MG UNKNOWN
  12. ZOFRAN [Concomitant]
     Active Substance: ONDANSETRON HYDROCHLORIDE
     Dosage: 8.0MG UNKNOWN
  13. COMPAZINE [Concomitant]
     Active Substance: PROCHLORPERAZINE MALEATE
     Dosage: 10.0MG UNKNOWN
  14. LYNPARZA [Suspect]
     Active Substance: OLAPARIB
     Indication: OVARIAN CANCER RECURRENT
     Route: 048
     Dates: start: 20201118, end: 20201119
  15. LYNPARZA [Suspect]
     Active Substance: OLAPARIB
     Indication: OVARIAN CANCER RECURRENT
     Route: 048
  16. LORAZEPAM. [Concomitant]
     Active Substance: LORAZEPAM
     Dosage: 1.0MG UNKNOWN
  17. CALCIUM D3 [Concomitant]
     Active Substance: CALCIUM\CHOLECALCIFEROL
  18. NEUROTIN [Concomitant]
     Dosage: 300.0MG UNKNOWN
  19. SUPER B 50 COMPLEX [Concomitant]
     Dosage: DAILY
  20. FLEXERIL [Concomitant]
     Active Substance: CYCLOBENZAPRINE HYDROCHLORIDE
     Dosage: 5.0MG UNKNOWN
  21. DECADRON [Concomitant]
     Active Substance: DEXAMETHASONE
     Dosage: 4.0MG UNKNOWN

REACTIONS (2)
  - Swelling face [Unknown]
  - Rash [Recovered/Resolved]

NARRATIVE: CASE EVENT DATE: 20201119
